FAERS Safety Report 6420926-7 (Version None)
Quarter: 2009Q4

REPORT INFORMATION
  Report Type: 
  Country: None (occurrence: None)
  Receive Date: 20091030
  Receipt Date: 20091020
  Transmission Date: 20100525
  Serious: Yes (Life-Threatening, Hospitalization, Other)
  Sender: FDA-Public Use
  Company Number: US-JNJFOC-20070302868

PATIENT
  Sex: Female

DRUGS (4)
  1. RISPERDAL [Suspect]
     Indication: ANXIETY
     Route: 048
  2. LAMICTAL [Concomitant]
  3. THYROID TAB [Concomitant]
     Route: 062
  4. THYROID HORMONES [Concomitant]
     Indication: THYROID DISORDER
     Route: 048

REACTIONS (18)
  - ADVERSE EVENT [None]
  - BALANCE DISORDER [None]
  - BLOOD GROWTH HORMONE DECREASED [None]
  - BLOOD KETONE BODY INCREASED [None]
  - BLOOD OESTROGEN DECREASED [None]
  - COMA [None]
  - DIZZINESS [None]
  - HYPOTHALAMO-PITUITARY DISORDER [None]
  - INSOMNIA [None]
  - NEUROLEPTIC MALIGNANT SYNDROME [None]
  - PARKINSONISM [None]
  - PITUITARY INFARCTION [None]
  - PSYCHOTIC DISORDER [None]
  - THYROID DISORDER [None]
  - URINARY TRACT INFECTION [None]
  - VAGINAL HAEMORRHAGE [None]
  - VAGINAL INFECTION [None]
  - VISION BLURRED [None]
